FAERS Safety Report 18069316 (Version 2)
Quarter: 2020Q3

REPORT INFORMATION
  Report Type: Spontaneous
  Country: ES (occurrence: ES)
  Receive Date: 20200725
  Receipt Date: 20200807
  Transmission Date: 20201103
  Serious: Yes (Other)
  Sender: FDA-Public Use
  Company Number: ES-AMGEN-ESPSP2020118665

PATIENT
  Age: 56 Year
  Sex: Male

DRUGS (3)
  1. ROSUVASTATIN. [Concomitant]
     Active Substance: ROSUVASTATIN
     Indication: DYSLIPIDAEMIA
  2. APREMILAST [Suspect]
     Active Substance: APREMILAST
     Indication: PALMOPLANTAR PUSTULOSIS
     Dosage: 30 MILLIGRAM, TWICE
     Route: 048
     Dates: start: 20180615, end: 20180716
  3. ROSUVASTATIN. [Concomitant]
     Active Substance: ROSUVASTATIN
     Indication: BLOOD CHOLESTEROL ABNORMAL
     Dosage: UNK
     Dates: start: 20180531

REACTIONS (7)
  - Diarrhoea [Unknown]
  - Rash erythematous [Recovered/Resolved]
  - Off label use [Unknown]
  - Headache [Unknown]
  - Cheilitis [Recovered/Resolved]
  - Photosensitivity reaction [Recovered/Resolved]
  - Skin lesion [Recovered/Resolved]

NARRATIVE: CASE EVENT DATE: 20180615
